FAERS Safety Report 4789441-0 (Version None)
Quarter: 2005Q4

REPORT INFORMATION
  Report Type: 
  Country: None (occurrence: None)
  Receive Date: 20051004
  Receipt Date: 20051004
  Transmission Date: 20060501
  Serious: Yes (Hospitalization)
  Sender: FDA-Public Use
  Company Number: None

PATIENT
  Sex: Male

DRUGS (11)
  1. WARFARIN SODIUM [Suspect]
     Indication: ATRIAL FIBRILLATION
     Dosage: 5MG PO QD
     Route: 048
  2. GLIMEPIRIDE [Concomitant]
  3. HYDRALAZINE [Concomitant]
  4. ISOSORBIDE MONONITRATE [Concomitant]
  5. RANITIDINE [Concomitant]
  6. CETIRIZINE HCL [Concomitant]
  7. HYOSCYAMINE [Concomitant]
  8. METOPROLOL [Concomitant]
  9. MOMETASONE NASAL [Concomitant]
  10. CALCIUM ACETATE [Concomitant]
  11. SEVELAMER [Concomitant]

REACTIONS (3)
  - HAEMATEMESIS [None]
  - HAEMORRHAGE [None]
  - INTERNATIONAL NORMALISED RATIO INCREASED [None]
